FAERS Safety Report 4844027-4 (Version None)
Quarter: 2005Q4

REPORT INFORMATION
  Report Type: 
  Country: None (occurrence: None)
  Receive Date: 20051202
  Receipt Date: 20051123
  Transmission Date: 20060501
  Serious: Yes (Death, Hospitalization)
  Sender: FDA-Public Use
  Company Number: US-MERCK-0511USA04611

PATIENT
  Age: 60 Year
  Sex: Male
  Weight: 105 kg

DRUGS (5)
  1. VIOXX [Suspect]
     Indication: PAIN
     Route: 048
     Dates: start: 20010101, end: 20040101
  2. RENAGEL [Concomitant]
     Route: 065
  3. CLONIDINE [Concomitant]
     Route: 065
  4. LIPITOR [Concomitant]
     Route: 065
  5. AVANDIA [Concomitant]
     Route: 065

REACTIONS (4)
  - BACK DISORDER [None]
  - BACK PAIN [None]
  - DEATH [None]
  - STAPHYLOCOCCAL INFECTION [None]
